FAERS Safety Report 20126798 (Version 1)
Quarter: 2021Q4

REPORT INFORMATION
  Report Type: Spontaneous
  Country: US (occurrence: None)
  Receive Date: 20211129
  Receipt Date: 20211129
  Transmission Date: 20220303
  Serious: No
  Sender: FDA-Public Use
  Company Number: None

PATIENT
  Age: 27 Year
  Sex: Male
  Weight: 91 kg

DRUGS (2)
  1. BAMLANIVIMAB [Suspect]
     Active Substance: BAMLANIVIMAB
     Indication: COVID-19
     Dosage: FREQUENCY : ONCE;?
     Route: 042
     Dates: start: 20211019, end: 20211019
  2. ETESEVIMAB [Suspect]
     Active Substance: ETESEVIMAB
     Dates: start: 20211019, end: 20211019

REACTIONS (4)
  - Productive cough [None]
  - Lethargy [None]
  - Sedation [None]
  - Wheezing [None]

NARRATIVE: CASE EVENT DATE: 20211020
